FAERS Safety Report 10565215 (Version 3)
Quarter: 2014Q4

REPORT INFORMATION
  Report Type: Spontaneous
  Country: CN (occurrence: CN)
  Receive Date: 20141105
  Receipt Date: 20141113
  Transmission Date: 20150529
  Serious: Yes (Other)
  Sender: FDA-Public Use
  Company Number: CN-BAYER-2014-156065

PATIENT

DRUGS (1)
  1. GLUCOBAY [Suspect]
     Active Substance: ACARBOSE

REACTIONS (2)
  - Suspected counterfeit product [None]
  - Diabetes mellitus inadequate control [None]
